FAERS Safety Report 8886275 (Version 2)
Quarter: 2012Q4

REPORT INFORMATION
  Report Type: 
  Country: US (occurrence: US)
  Receive Date: 20121105
  Receipt Date: 20121213
  Transmission Date: 20130627
  Serious: Yes (Hospitalization, Other)
  Sender: FDA-Public Use
  Company Number: US-PFIZER INC-2012272996

PATIENT
  Age: 56 Year
  Sex: Female

DRUGS (13)
  1. EFFEXOR XR [Suspect]
     Indication: DEPRESSION
     Dosage: 150 mg, 2x/day
     Route: 048
     Dates: end: 200601
  2. EFFEXOR [Suspect]
     Indication: DEPRESSION
     Dosage: UNK
     Route: 048
  3. ATENOLOL [Concomitant]
     Indication: HEART DISORDER
     Dosage: 50 mg,daily
  4. SIMVASTATIN [Concomitant]
     Indication: HIGH CHOLESTEROL
     Dosage: 40 mg,daily
  5. ALLOPURINOL [Concomitant]
     Indication: GOUT
     Dosage: 300 mg,daily
  6. SYNTHROID [Concomitant]
     Indication: THYROID DISORDER
     Dosage: 175 ug,daily
     Route: 048
  7. DITROPAN [Concomitant]
     Dosage: 5 mg, 2x/day
  8. PERCOCET [Concomitant]
     Indication: PAIN
     Dosage: UNK
     Route: 048
  9. METHADONE [Concomitant]
     Indication: PAIN
     Dosage: 5 mg, 4x/day
  10. CITALOPRAM HYDROBROMIDE [Concomitant]
     Dosage: 20 mg,daily
  11. RESTORIL [Concomitant]
     Indication: SLEEP PROBLEM
     Dosage: 30 mg, daily
     Route: 048
  12. ESTRACE [Concomitant]
     Indication: HOT FLASHES
     Dosage: 0.5 mg, UNK
  13. CYCRIN [Concomitant]
     Indication: HOT FLASHES
     Dosage: 2.5 mg, daily

REACTIONS (7)
  - Renal failure [Unknown]
  - Myocardial infarction [Recovered/Resolved]
  - Hallucinations, mixed [Recovered/Resolved]
  - Liver disorder [Unknown]
  - Depression [Unknown]
  - Crying [Unknown]
  - Malaise [Unknown]
